FAERS Safety Report 24365491 (Version 1)
Quarter: 2024Q3

REPORT INFORMATION
  Report Type: Spontaneous
  Country: JP (occurrence: JP)
  Receive Date: 20240926
  Receipt Date: 20240926
  Transmission Date: 20241016
  Serious: Yes (Death, Hospitalization)
  Sender: STRIDES
  Company Number: JP-STRIDES ARCOLAB LIMITED-2024SP012287

PATIENT
  Age: 52 Year
  Sex: Female

DRUGS (9)
  1. PREDNISOLONE [Suspect]
     Active Substance: PREDNISOLONE
     Indication: Psoriatic arthropathy
     Dosage: 1 MILLIGRAM, QD
     Route: 048
  2. HYDROCORTISONE [Suspect]
     Active Substance: HYDROCORTISONE\HYDROCORTISONE ACETATE
     Indication: Prophylaxis
     Dosage: UNK
     Route: 065
  3. METHOTREXATE [Suspect]
     Active Substance: METHOTREXATE
     Indication: Psoriatic arthropathy
     Dosage: UNK
     Route: 065
  4. ETANERCEPT [Suspect]
     Active Substance: ETANERCEPT
     Indication: Psoriatic arthropathy
     Dosage: UNK
     Route: 065
  5. DEXAMETHASONE [Suspect]
     Active Substance: DEXAMETHASONE
     Indication: Dexamethasone suppression test
     Dosage: UNK
     Route: 065
  6. METYRAPONE [Concomitant]
     Active Substance: METYRAPONE
     Indication: Ectopic ACTH syndrome
     Dosage: 250 MILLIGRAM, QD
     Route: 065
  7. METYRAPONE [Concomitant]
     Active Substance: METYRAPONE
     Dosage: 500 MILLIGRAM, QD
     Route: 065
  8. METYRAPONE [Concomitant]
     Active Substance: METYRAPONE
     Dosage: 750 MILLIGRAM, QD
     Route: 065
  9. METYRAPONE [Concomitant]
     Active Substance: METYRAPONE
     Dosage: 1000 MILLIGRAM, QD
     Route: 065

REACTIONS (8)
  - Disseminated intravascular coagulation [Fatal]
  - Acute respiratory distress syndrome [Fatal]
  - Pulmonary alveolar haemorrhage [Unknown]
  - Sepsis [Fatal]
  - Infection [Fatal]
  - Cellulitis [Fatal]
  - Cushingoid [Unknown]
  - Septic shock [Unknown]
